FAERS Safety Report 7665480-7 (Version None)
Quarter: 2011Q3

REPORT INFORMATION
  Report Type: 
  Country: None (occurrence: None)
  Receive Date: 20110806
  Receipt Date: 20110322
  Transmission Date: 20111222
  Serious: No
  Sender: FDA-Public Use
  Company Number: US-ABBOTT-11P-163-0713492-00

PATIENT
  Sex: Female
  Weight: 59.02 kg

DRUGS (8)
  1. GEMFIBROZIL [Concomitant]
     Indication: PRODUCT USED FOR UNKNOWN INDICATION
  2. AVELOX [Concomitant]
     Indication: SINUSITIS
     Dosage: 400MG DAILY
     Route: 048
     Dates: start: 20110313
  3. LIPITOR [Concomitant]
     Indication: PRODUCT USED FOR UNKNOWN INDICATION
  4. WELCHOL [Concomitant]
     Indication: PRODUCT USED FOR UNKNOWN INDICATION
  5. PLAVIX [Concomitant]
     Indication: PRODUCT USED FOR UNKNOWN INDICATION
  6. NIASPAN [Suspect]
     Indication: LOW DENSITY LIPOPROTEIN INCREASED
     Dosage: AT BEDTIME
     Route: 048
     Dates: start: 20110314
  7. METOPROLOL TARTRATE [Concomitant]
     Indication: PRODUCT USED FOR UNKNOWN INDICATION
     Route: 048
  8. ASPIRIN [Concomitant]
     Indication: PRODUCT USED FOR UNKNOWN INDICATION
     Dosage: AT BEDTIME
     Route: 048

REACTIONS (4)
  - LACRIMATION INCREASED [None]
  - FLUSHING [None]
  - BURNING SENSATION [None]
  - OCULAR HYPERAEMIA [None]
